FAERS Safety Report 24418399 (Version 7)
Quarter: 2025Q2

REPORT INFORMATION
  Report Type: Spontaneous
  Country: US (occurrence: US)
  Receive Date: 20241009
  Receipt Date: 20250409
  Transmission Date: 20250717
  Serious: Yes (Other)
  Sender: SANOFI AVENTIS
  Company Number: US-SA-2024SA290822

PATIENT
  Age: 31 Year
  Sex: Male

DRUGS (7)
  1. ELOCTATE [Suspect]
     Active Substance: EFMOROCTOCOG ALFA
     Indication: Factor VIII deficiency
     Dosage: 4875 U, QD
     Route: 042
     Dates: start: 201801
  2. ELOCTATE [Suspect]
     Active Substance: EFMOROCTOCOG ALFA
     Indication: Factor VIII deficiency
     Dosage: 4875 U, QD
     Route: 042
     Dates: start: 201801
  3. ELOCTATE [Suspect]
     Active Substance: EFMOROCTOCOG ALFA
     Dosage: 4320 IU (3888-4752), QD FOR MAJOR BLEED
     Route: 042
     Dates: start: 201801
  4. ELOCTATE [Suspect]
     Active Substance: EFMOROCTOCOG ALFA
     Dosage: 4320 IU (3888-4752), QD FOR MAJOR BLEED
     Route: 042
     Dates: start: 201801
  5. ELOCTATE [Suspect]
     Active Substance: EFMOROCTOCOG ALFA
     Dosage: 2592 IU, (2333-2851) QD FOR MILD OR MODERATE BLEED
     Route: 042
     Dates: start: 201801
  6. ELOCTATE [Suspect]
     Active Substance: EFMOROCTOCOG ALFA
     Dosage: 2592 IU, (2333-2851) QD FOR MILD OR MODERATE BLEED
     Route: 042
     Dates: start: 201801
  7. SODIUM CHLORIDE [Concomitant]
     Active Substance: SODIUM CHLORIDE

REACTIONS (9)
  - Haemarthrosis [Recovered/Resolved]
  - Haemorrhage [Recovered/Resolved]
  - Weight increased [Unknown]
  - Spontaneous haemorrhage [Recovered/Resolved]
  - Spontaneous haemorrhage [Unknown]
  - Haemorrhage [Recovered/Resolved]
  - Spontaneous haemorrhage [Recovered/Resolved]
  - Limb injury [Unknown]
  - Traumatic haemorrhage [Unknown]

NARRATIVE: CASE EVENT DATE: 20240907
